FAERS Safety Report 16983360 (Version 1)
Quarter: 2019Q4

REPORT INFORMATION
  Report Type: Report from Study
  Country: FR (occurrence: FR)
  Receive Date: 20191101
  Receipt Date: 20191101
  Transmission Date: 20200122
  Serious: Yes (Death)
  Sender: FDA-Public Use
  Company Number: FR-PFIZER INC-2019472739

PATIENT

DRUGS (1)
  1. TOPOTECAN HYDROCHLORIDE. [Suspect]
     Active Substance: TOPOTECAN HYDROCHLORIDE
     Indication: SMALL CELL LUNG CANCER
     Dosage: 2.3 MG/M2, CYCLIC: D 1-5, EVERY 3 WEEKS
     Route: 048

REACTIONS (2)
  - Febrile neutropenia [Fatal]
  - Sepsis [Fatal]
